FAERS Safety Report 21779587 (Version 1)
Quarter: 2022Q4

REPORT INFORMATION
  Report Type: Report from Study
  Country: US (occurrence: US)
  Receive Date: 20221226
  Receipt Date: 20221226
  Transmission Date: 20230113
  Serious: No
  Sender: FDA-Public Use
  Company Number: US-ABBVIE-22K-163-4524223-00

PATIENT
  Age: 19 Year
  Sex: Female

DRUGS (3)
  1. HUMIRA [Suspect]
     Active Substance: ADALIMUMAB
     Indication: Crohn^s disease
     Dosage: 160MG?DAY 1
     Route: 058
     Dates: start: 20211115, end: 20211115
  2. HUMIRA [Suspect]
     Active Substance: ADALIMUMAB
     Dosage: 80MG?DAY 15
     Route: 058
     Dates: start: 20211130, end: 20211130
  3. HUMIRA [Suspect]
     Active Substance: ADALIMUMAB
     Dosage: 40MG?DAY 29
     Route: 058
     Dates: start: 2022

REACTIONS (1)
  - Insomnia [Recovered/Resolved]

NARRATIVE: CASE EVENT DATE: 20220701
